FAERS Safety Report 6334940-3 (Version None)
Quarter: 2009Q3

REPORT INFORMATION
  Report Type: 
  Country: None (occurrence: None)
  Receive Date: 20090831
  Receipt Date: 20090825
  Transmission Date: 20100115
  Serious: Yes (Other)
  Sender: FDA-Public Use
  Company Number: CO-BAYER-200920917LA

PATIENT
  Age: 62 Year
  Sex: Male
  Weight: 128 kg

DRUGS (1)
  1. MAGNEVIST [Suspect]
     Indication: NUCLEAR MAGNETIC RESONANCE IMAGING
     Route: 040
     Dates: start: 20090820, end: 20090820

REACTIONS (5)
  - FEELING HOT [None]
  - FLUSHING [None]
  - OEDEMA PERIPHERAL [None]
  - PAIN IN EXTREMITY [None]
  - VENOUS THROMBOSIS LIMB [None]
